FAERS Safety Report 19105570 (Version 7)
Quarter: 2022Q3

REPORT INFORMATION
  Report Type: Report from Study
  Country: US (occurrence: US)
  Receive Date: 20210407
  Receipt Date: 20220929
  Transmission Date: 20221027
  Serious: Yes (Other)
  Sender: FDA-Public Use
  Company Number: US-TAKEDA-US202030741

PATIENT
  Age: 69 Year
  Sex: Female

DRUGS (2)
  1. HUMAN IMMUNOGLOBULIN G [Suspect]
     Active Substance: HUMAN IMMUNOGLOBULIN G
     Indication: Primary immunodeficiency syndrome
     Dosage: 17 GRAM, 1/WEEK
     Route: 065
  2. HUMAN IMMUNOGLOBULIN G [Suspect]
     Active Substance: HUMAN IMMUNOGLOBULIN G
     Dosage: 23 GRAM, 1/WEEK
     Route: 065

REACTIONS (17)
  - Arthritis infective [Unknown]
  - Mast cell activation syndrome [Unknown]
  - Asthma [Recovering/Resolving]
  - Immunoglobulins decreased [Unknown]
  - Weight decreased [Unknown]
  - Gout [Not Recovered/Not Resolved]
  - Arthritis [Unknown]
  - Mass [Unknown]
  - Renal disorder [Unknown]
  - Renal cyst [Not Recovered/Not Resolved]
  - Crystal arthropathy [Not Recovered/Not Resolved]
  - Pancreatic cyst [Unknown]
  - Pain in extremity [Unknown]
  - Pain [Unknown]
  - Product dose omission issue [Unknown]
  - Seasonal allergy [Unknown]
  - COVID-19 [Recovering/Resolving]

NARRATIVE: CASE EVENT DATE: 20210226
